FAERS Safety Report 9779922 (Version 1)
Quarter: 2013Q4

REPORT INFORMATION
  Report Type: Spontaneous
  Country: US (occurrence: US)
  Receive Date: 20131223
  Receipt Date: 20131223
  Transmission Date: 20140711
  Serious: Yes (Other)
  Sender: FDA-Public Use
  Company Number: US-TEVA-451920USA

PATIENT
  Age: 38 Year
  Sex: Female

DRUGS (1)
  1. COPAXONE [Suspect]
     Indication: MULTIPLE SCLEROSIS
     Dates: start: 20120120, end: 20131117

REACTIONS (4)
  - Multiple sclerosis relapse [Unknown]
  - Serum ferritin decreased [Unknown]
  - Central nervous system lesion [Unknown]
  - Haemoglobin decreased [Unknown]
